FAERS Safety Report 6241378-6 (Version None)
Quarter: 2009Q2

REPORT INFORMATION
  Report Type: 
  Country: None (occurrence: None)
  Receive Date: 20090619
  Receipt Date: 20090619
  Transmission Date: 20091009
  Serious: No
  Sender: FDA-Public Use
  Company Number: None

PATIENT
  Age: 25 Year
  Sex: Female
  Weight: 81.6475 kg

DRUGS (1)
  1. ZICAM NASAL SPRAY NORMAL STRENGTH ZICAM [Suspect]
     Indication: SINUS CONGESTION
     Dosage: 2-3 SQUIRTS IN EACH NOSTRIL EVERY 4-6 HOURS NASAL (I ONLY USED IT ONE DOSE)
     Route: 045

REACTIONS (1)
  - HYPOSMIA [None]
